FAERS Safety Report 12605906 (Version 1)
Quarter: 2016Q3

REPORT INFORMATION
  Report Type: Spontaneous
  Country: US (occurrence: None)
  Receive Date: 20160728
  Receipt Date: 20160728
  Transmission Date: 20161109
  Serious: Yes (Disabling)
  Sender: FDA-Public Use
  Company Number: None

PATIENT
  Age: 45 Year
  Sex: Female
  Weight: 74.84 kg

DRUGS (12)
  1. MINOCYCLINE [Suspect]
     Active Substance: MINOCYCLINE\MINOCYCLINE HYDROCHLORIDE
     Indication: ACNE
     Route: 048
     Dates: start: 20000601, end: 20130601
  2. AZITHROMYCIN ANHYDROUS. [Concomitant]
     Active Substance: AZITHROMYCIN ANHYDROUS
  3. BACLOFEN. [Concomitant]
     Active Substance: BACLOFEN
  4. DULOXETINE. [Concomitant]
     Active Substance: DULOXETINE
  5. ALLERGY INJECTIONS [Concomitant]
  6. LAMICTAL [Concomitant]
     Active Substance: LAMOTRIGINE
  7. PAROXETINE. [Concomitant]
     Active Substance: PAROXETINE
  8. BOTOX [Concomitant]
     Active Substance: ONABOTULINUMTOXINA
  9. TETRACYCLINE [Suspect]
     Active Substance: TETRACYCLINE
     Indication: ACNE
     Route: 048
     Dates: start: 20151218, end: 20151223
  10. MODAFINIL. [Concomitant]
     Active Substance: MODAFINIL
  11. TREXIMET [Concomitant]
     Active Substance: NAPROXEN SODIUM\SUMATRIPTAN SUCCINATE
  12. VITAMIN D3 [Concomitant]
     Active Substance: CHOLECALCIFEROL

REACTIONS (7)
  - Jarisch-Herxheimer reaction [None]
  - Drug ineffective [None]
  - Acne [None]
  - Fatigue [None]
  - Skin disorder [None]
  - Intracranial pressure increased [None]
  - Arthralgia [None]

NARRATIVE: CASE EVENT DATE: 20151218
